FAERS Safety Report 4551036-1 (Version None)
Quarter: 2005Q1

REPORT INFORMATION
  Report Type: 
  Country: None (occurrence: None)
  Receive Date: 20050113
  Receipt Date: 20040526
  Transmission Date: 20050727
  Serious: Yes (Other)
  Sender: FDA-Public Use
  Company Number: US-BRISTOL-MYERS SQUIBB COMPANY-12597126

PATIENT
  Age: 43 Year
  Sex: Female
  Weight: 82 kg

DRUGS (2)
  1. TRAZODONE HCL [Suspect]
     Indication: OBSESSIVE-COMPULSIVE PERSONALITY DISORDER
     Dosage: THERAPY WAS INITIATED ^A FEW WEEKS AGO^
     Route: 048
  2. CALCIUM GLUCONATE [Concomitant]

REACTIONS (1)
  - GRAND MAL CONVULSION [None]
